FAERS Safety Report 5335867-6 (Version None)
Quarter: 2007Q2

REPORT INFORMATION
  Report Type: 
  Country: None (occurrence: None)
  Receive Date: 20070228
  Receipt Date: 20061114
  Transmission Date: 20071010
  Serious: No
  Sender: FDA-Public Use
  Company Number: S06-USA-04813-01

PATIENT
  Age: 59 Year
  Sex: Female

DRUGS (2)
  1. CAMPRAL [Suspect]
     Dates: start: 20060731, end: 20061103
  2. VIVITROL [Suspect]

REACTIONS (3)
  - DRUG INTERACTION [None]
  - NIGHTMARE [None]
  - UNEVALUABLE EVENT [None]
